FAERS Safety Report 18266959 (Version 1)
Quarter: 2020Q3

REPORT INFORMATION
  Report Type: Spontaneous
  Country: US (occurrence: US)
  Receive Date: 20200915
  Receipt Date: 20200915
  Transmission Date: 20201103
  Serious: No
  Sender: FDA-Public Use
  Company Number: US-SHIRE-US202029896

PATIENT
  Age: 61 Year
  Sex: Male
  Weight: 68.48 kg

DRUGS (1)
  1. CUVITRU [Suspect]
     Active Substance: HUMAN IMMUNOGLOBULIN G
     Indication: IMMUNODEFICIENCY COMMON VARIABLE
     Dosage: 20 GRAM, EVERY 14 DAYS
     Route: 058

REACTIONS (5)
  - Infusion site pain [Recovering/Resolving]
  - Infusion site erythema [Not Recovered/Not Resolved]
  - Condition aggravated [Not Recovered/Not Resolved]
  - Fatigue [Unknown]
  - Infusion site pruritus [Recovering/Resolving]

NARRATIVE: CASE EVENT DATE: 20200827
